FAERS Safety Report 7374503-4 (Version None)
Quarter: 2011Q1

REPORT INFORMATION
  Report Type: 
  Country: None (occurrence: None)
  Receive Date: 20110325
  Receipt Date: 20110315
  Transmission Date: 20110831
  Serious: No
  Sender: FDA-Public Use
  Company Number: US-MYLANLABS-2011S1001912

PATIENT
  Age: 51 Year
  Sex: Female
  Weight: 83.46 kg

DRUGS (11)
  1. LORAZEPAM [Concomitant]
  2. BENAZEPRIL HYDROCHLORIDE [Concomitant]
  3. LEXAPRO [Concomitant]
  4. ALBUTEROL [Concomitant]
  5. FENTANYL-100 [Suspect]
     Indication: PAIN
     Dosage: CHANGED Q72H
     Route: 062
     Dates: start: 20110102, end: 20110121
  6. ULTRACET [Concomitant]
  7. FENTANYL-100 [Suspect]
     Indication: FIBROMYALGIA
     Dosage: CHANGED Q72H
     Route: 062
     Dates: start: 20110102, end: 20110121
  8. NASONEX [Concomitant]
  9. CRESTOR [Concomitant]
  10. ASPIRIN [Concomitant]
  11. BUPROPION HYDROCHLORIDE [Concomitant]

REACTIONS (3)
  - APPLICATION SITE RASH [None]
  - RASH GENERALISED [None]
  - PAIN [None]
